FAERS Safety Report 20294015 (Version 2)
Quarter: 2022Q1

REPORT INFORMATION
  Report Type: Spontaneous
  Country: BR (occurrence: BR)
  Receive Date: 20220104
  Receipt Date: 20220208
  Transmission Date: 20220424
  Serious: Yes (Other)
  Sender: FDA-Public Use
  Company Number: BR-TAKEDA-2022TUS000332

PATIENT
  Age: 39 Year
  Sex: Female
  Weight: 52 kg

DRUGS (3)
  1. DEXILANT [Suspect]
     Active Substance: DEXLANSOPRAZOLE
     Indication: Erosive oesophagitis
     Dosage: 60 MILLIGRAM, QD
     Route: 048
     Dates: start: 20211130, end: 20211228
  2. DEXILANT [Suspect]
     Active Substance: DEXLANSOPRAZOLE
     Dosage: 60 MILLIGRAM, QD
     Route: 048
  3. DOMPERIDONE [Concomitant]
     Active Substance: DOMPERIDONE
     Dosage: UNK
     Route: 065
     Dates: start: 20211130

REACTIONS (13)
  - Herpes virus infection [Unknown]
  - Muscular weakness [Unknown]
  - Illness [Unknown]
  - Depressed mood [Unknown]
  - Impaired work ability [Unknown]
  - Weight decreased [Unknown]
  - Appetite disorder [Unknown]
  - Somnolence [Unknown]
  - Dry mouth [Unknown]
  - Chest pain [Unknown]
  - Influenza [Unknown]
  - Oral herpes [Unknown]
  - Off label use [Unknown]

NARRATIVE: CASE EVENT DATE: 20211216
